FAERS Safety Report 5216137-3 (Version None)
Quarter: 2007Q1

REPORT INFORMATION
  Report Type: 
  Country: None (occurrence: None)
  Receive Date: 20070123
  Receipt Date: 20070112
  Transmission Date: 20070707
  Serious: Yes (Other)
  Sender: FDA-Public Use
  Company Number: US-PFIZER INC-2007004529

PATIENT
  Sex: Female
  Weight: 56.7 kg

DRUGS (4)
  1. CHANTIX [Suspect]
     Indication: SMOKING CESSATION THERAPY
     Route: 048
  2. GLUCOSAMINE [Concomitant]
  3. CENTRUM [Concomitant]
  4. TUMS [Concomitant]

REACTIONS (9)
  - EAR PAIN [None]
  - FATIGUE [None]
  - HYPERSOMNIA [None]
  - NASAL OEDEMA [None]
  - NASOPHARYNGITIS [None]
  - PHARYNGEAL OEDEMA [None]
  - PHARYNGOLARYNGEAL PAIN [None]
  - STOMACH DISCOMFORT [None]
  - SWOLLEN TONGUE [None]
